FAERS Safety Report 6985694-9 (Version None)
Quarter: 2010Q3

REPORT INFORMATION
  Report Type: 
  Country: None (occurrence: None)
  Receive Date: 20100915
  Receipt Date: 20100908
  Transmission Date: 20110219
  Serious: Yes (Hospitalization)
  Sender: FDA-Public Use
  Company Number: NL-MPIJNJ-2010-02113

PATIENT

DRUGS (12)
  1. VELCADE [Suspect]
     Indication: MULTIPLE MYELOMA
     Dosage: 2.4 MG, UNK
     Dates: start: 20090629, end: 20090702
  2. VELCADE [Suspect]
     Dosage: 1.3 UNK, UNK
     Dates: start: 20091022
  3. VELCADE [Suspect]
     Dosage: 1.3 UNK, UNK
     Dates: start: 20091103, end: 20091110
  4. CO-APROVEL [Concomitant]
     Indication: HYPERTENSION
     Dosage: UNK
     Route: 048
     Dates: end: 20090703
  5. NEXIAM                             /01479301/ [Concomitant]
     Indication: PROPHYLAXIS
     Dosage: 20 MG, UNK
     Route: 048
     Dates: end: 20091125
  6. TRAMADOL [Concomitant]
     Indication: OSTEOLYSIS
     Dosage: 50 MG, UNK
     Route: 048
     Dates: end: 20090710
  7. TRAMADOL [Concomitant]
     Dosage: 150 UNK, UNK
     Route: 048
     Dates: start: 20090701, end: 20091202
  8. DEXAMETHASONE [Concomitant]
     Indication: MULTIPLE MYELOMA
     Dosage: UNK
     Dates: start: 20090819, end: 20091110
  9. RED BLOOD CELLS [Concomitant]
     Dosage: UNK
     Route: 042
     Dates: start: 20090702, end: 20090702
  10. CEFTRIAXONE [Concomitant]
     Dosage: 2 G, UNK
     Route: 042
     Dates: start: 20090703, end: 20090709
  11. METOCLOPRAMIDE [Concomitant]
     Dosage: 10 MG, UNK
     Route: 048
     Dates: start: 20090701, end: 20090710
  12. LYRICA [Concomitant]
     Indication: POLYNEUROPATHY
     Dosage: 150 MG, UNK
     Route: 048
     Dates: end: 20090701

REACTIONS (5)
  - ASPARTATE AMINOTRANSFERASE INCREASED [None]
  - BLOOD CREATININE INCREASED [None]
  - BLOOD LACTATE DEHYDROGENASE INCREASED [None]
  - LEUKOPENIA [None]
  - THROMBOCYTOPENIA [None]
